FAERS Safety Report 19301259 (Version 1)
Quarter: 2021Q2

REPORT INFORMATION
  Report Type: Spontaneous
  Country: EG (occurrence: EG)
  Receive Date: 20210525
  Receipt Date: 20210525
  Transmission Date: 20210717
  Serious: Yes (Other)
  Sender: FDA-Public Use
  Company Number: EG-HIKMA PHARMACEUTICALS USA INC.-EG-H14001-21-02354

PATIENT
  Age: 57 Year
  Sex: Female
  Weight: 79 kg

DRUGS (5)
  1. CARBOTINOL [Suspect]
     Active Substance: CARBOPLATIN
     Indication: COLON CANCER
     Route: 041
  2. ASPOCID [Concomitant]
     Active Substance: ASPIRIN
     Indication: PRODUCT USED FOR UNKNOWN INDICATION
     Dosage: UNKNOWN
     Route: 065
  3. TRICARDIA [Concomitant]
     Indication: MYOCARDIAL ISCHAEMIA
     Dosage: UNKNOWN
     Route: 065
  4. NITROTARD [Concomitant]
     Indication: MYOCARDIAL ISCHAEMIA
     Dosage: UNKNOWN
     Route: 065
  5. UNITAXEL [Concomitant]
     Active Substance: PACLITAXEL
     Indication: COLON CANCER
     Route: 041

REACTIONS (6)
  - Muscular weakness [Recovered/Resolved]
  - Oedema [Recovered/Resolved]
  - Urinary incontinence [Recovered/Resolved]
  - Anaphylactic shock [Recovered/Resolved]
  - Flushing [Recovered/Resolved]
  - Dyspnoea [Recovered/Resolved]
